FAERS Safety Report 9516529 (Version 1)
Quarter: 2013Q1

REPORT INFORMATION
  Report Type: Spontaneous
  Country: US (occurrence: None)
  Receive Date: 20130305
  Receipt Date: 20130305
  Transmission Date: 20140127
  Serious: Yes (Other)
  Sender: FDA-Public Use
  Company Number: 163-21880-12113810

PATIENT
  Age: 74 Year
  Sex: Female

DRUGS (9)
  1. REVLIMID [Suspect]
     Indication: 5Q MINUS SYNDROME
     Dosage: 10 MG, 21 IN 21 D, PO
     Route: 048
     Dates: start: 20121114
  2. AMBIEN (ZOLPIDEM TARTRATE) [Concomitant]
  3. COUMADIN (WARFARIN SODIUM) [Concomitant]
  4. DIOVAN (VALSARTAN) [Concomitant]
  5. FERROUS SULFATE (FERROUS SULFATE) [Concomitant]
  6. FOLIC ACID (FOLIC ACID) [Concomitant]
  7. FUROSEMIDE (FUROSEMIDE) [Concomitant]
  8. GLIPIZIDE (GLIPIZIDE) [Concomitant]
  9. ALLERGY (CHLORPHENENAMINE) [Concomitant]

REACTIONS (1)
  - Platelet count decreased [None]
